FAERS Safety Report 6615331-4 (Version None)
Quarter: 2010Q1

REPORT INFORMATION
  Report Type: 
  Country: None (occurrence: None)
  Receive Date: 20100305
  Receipt Date: 20091204
  Transmission Date: 20100710
  Serious: No
  Sender: FDA-Public Use
  Company Number: A0796258A

PATIENT
  Age: 60 Year
  Sex: Male
  Weight: 118.2 kg

DRUGS (12)
  1. REQUIP [Suspect]
     Indication: PARKINSON'S DISEASE
     Dosage: 1MG PER DAY
     Route: 048
     Dates: start: 20020101, end: 20090330
  2. ROPINIROLE [Suspect]
     Indication: RESTLESS LEGS SYNDROME
     Dosage: 1MG UNKNOWN
     Route: 048
     Dates: start: 20080530, end: 20090722
  3. NORCO [Concomitant]
  4. SIMVASTATIN [Concomitant]
  5. LISINOPRIL [Concomitant]
  6. CYMBALTA [Concomitant]
  7. NEURONTIN [Concomitant]
  8. SYNTHROID [Concomitant]
  9. INDERAL [Concomitant]
  10. MYSOLINE [Concomitant]
  11. CELEBREX [Concomitant]
  12. SINEMET [Concomitant]

REACTIONS (1)
  - GAMBLING [None]
